FAERS Safety Report 25208177 (Version 1)
Quarter: 2025Q2

REPORT INFORMATION
  Report Type: Spontaneous
  Country: EU (occurrence: EU)
  Receive Date: 20250417
  Receipt Date: 20250417
  Transmission Date: 20250716
  Serious: Yes (Other)
  Sender: SEPTODONT
  Company Number: None

PATIENT
  Weight: 60 kg

DRUGS (1)
  1. ARTICAINE\EPINEPHRINE [Suspect]
     Active Substance: ARTICAINE\EPINEPHRINE
     Indication: Dental care
     Route: 065
     Dates: start: 20250324, end: 20250324

REACTIONS (2)
  - Arrhythmia [Recovered/Resolved with Sequelae]
  - Atrial fibrillation [Recovered/Resolved with Sequelae]

NARRATIVE: CASE EVENT DATE: 20250324
